FAERS Safety Report 9204837 (Version 1)
Quarter: 2013Q1

REPORT INFORMATION
  Report Type: Spontaneous
  Country: US (occurrence: None)
  Receive Date: 20120709
  Receipt Date: 20120709
  Transmission Date: 20140127
  Serious: Yes (Hospitalization)
  Sender: FDA-Public Use
  Company Number: PHEH2011US04012

PATIENT
  Age: 79 Year
  Sex: Male
  Weight: 83.9 kg

DRUGS (5)
  1. GLEEVEC (IMATINIB) [Suspect]
     Route: 048
  2. NEXIUM (ESOMEPRAZOLE MAGENSIUM) [Concomitant]
  3. NORVASC (AMLODIPINE BESILATE) [Concomitant]
  4. HYDROCHLOROTHIAZIDE (HYDROCHLOROTHIAZIDE) [Concomitant]
  5. DIOVAN HCT (HYDROCHLOROTHIAZIDE, VALSARTAN) [Concomitant]

REACTIONS (5)
  - Anaemia [None]
  - Nausea [None]
  - Joint swelling [None]
  - Blood creatinine increased [None]
  - Haemoglobin decreased [None]
